FAERS Safety Report 18942538 (Version 1)
Quarter: 2021Q1

REPORT INFORMATION
  Report Type: Spontaneous
  Country: US (occurrence: US)
  Receive Date: 20210225
  Receipt Date: 20210225
  Transmission Date: 20210420
  Serious: No
  Sender: FDA-Public Use
  Company Number: US-PERRIGO-20US007814

PATIENT
  Age: 67 Year
  Sex: Male
  Weight: 94.33 kg

DRUGS (6)
  1. PROSTEON [Concomitant]
     Active Substance: MINERALS
     Indication: SUPPLEMENTATION THERAPY
     Dosage: UNK, UNK
     Route: 048
     Dates: start: 202003
  2. ALFUZOSIN [Concomitant]
     Active Substance: ALFUZOSIN
     Indication: PROSTATE CANCER
     Dosage: 10MG, UNK
     Route: 048
     Dates: start: 2018
  3. ELIGARD [Concomitant]
     Active Substance: LEUPROLIDE ACETATE
     Indication: PROSTATE CANCER
     Dosage: UNK, UNK
     Route: 059
     Dates: start: 202003
  4. ATORVASTATIN [Concomitant]
     Active Substance: ATORVASTATIN
     Indication: BLOOD CHOLESTEROL INCREASED
     Dosage: 10 MG, UNK
     Route: 048
     Dates: start: 2016
  5. NAPROXEN SODIUM. [Suspect]
     Active Substance: NAPROXEN SODIUM
     Indication: BACK PAIN
     Dosage: 440 MG, SINGLE
     Route: 048
     Dates: start: 20200526, end: 20200526
  6. VALACYCLOVIR [Concomitant]
     Active Substance: VALACYCLOVIR HYDROCHLORIDE
     Indication: HERPES SIMPLEX
     Dosage: 500 MG, UNK
     Route: 048
     Dates: start: 2007

REACTIONS (4)
  - Lip swelling [Recovering/Resolving]
  - Swelling face [Recovering/Resolving]
  - Expired product administered [Recovered/Resolved]
  - Dry mouth [Recovering/Resolving]

NARRATIVE: CASE EVENT DATE: 20200526
